FAERS Safety Report 16415791 (Version 2)
Quarter: 2020Q1

REPORT INFORMATION
  Report Type: Spontaneous
  Country: US (occurrence: US)
  Receive Date: 20190611
  Receipt Date: 20200207
  Transmission Date: 20200409
  Serious: No
  Sender: FDA-Public Use
  Company Number: US-SA-2019SA156516

PATIENT
  Sex: Female

DRUGS (1)
  1. AUBAGIO [Suspect]
     Active Substance: TERIFLUNOMIDE
     Indication: MULTIPLE SCLEROSIS
     Dosage: 14 MG, QD
     Route: 048
     Dates: start: 20181206

REACTIONS (8)
  - Pruritus [Unknown]
  - Cough [Unknown]
  - Fatigue [Unknown]
  - Influenza [Unknown]
  - Headache [Unknown]
  - Rash erythematous [Unknown]
  - Nausea [Unknown]
  - Pain [Unknown]
